FAERS Safety Report 22074527 (Version 2)
Quarter: 2024Q3

REPORT INFORMATION
  Report Type: Report from Study
  Country: CA (occurrence: CA)
  Receive Date: 20230308
  Receipt Date: 20240821
  Transmission Date: 20241017
  Serious: Yes (Other)
  Sender: HLS THERAPEUTICS
  Company Number: CA-HLS-202300579

PATIENT
  Age: 38 Year
  Sex: Male

DRUGS (2)
  1. CLOZARIL [Suspect]
     Active Substance: CLOZAPINE
     Indication: Schizophrenia
     Dosage: 150 MG BY MOUTH EVERY BEDTIME
     Route: 048
     Dates: start: 20221115
  2. INVEGA SUSTENNA [Concomitant]
     Active Substance: PALIPERIDONE PALMITATE
     Indication: Schizophrenia
     Dosage: 150 MG EVERY 21 DAYS
     Route: 065

REACTIONS (5)
  - Neutrophil count increased [Unknown]
  - Chest discomfort [Unknown]
  - Chest pain [Unknown]
  - Tachycardia [Recovering/Resolving]
  - Leukocytosis [Unknown]

NARRATIVE: CASE EVENT DATE: 20240807
